FAERS Safety Report 16368724 (Version 1)
Quarter: 2019Q2

REPORT INFORMATION
  Report Type: Spontaneous
  Country: EG (occurrence: EG)
  Receive Date: 20190529
  Receipt Date: 20190529
  Transmission Date: 20190711
  Serious: Yes (Other)
  Sender: FDA-Public Use
  Company Number: EG-PFM-2019-06175

PATIENT

DRUGS (2)
  1. NAVELBINE [Suspect]
     Active Substance: VINORELBINE TARTRATE
     Indication: BREAST CANCER METASTATIC
     Dosage: UNKNOWN
     Route: 042
     Dates: start: 20190424
  2. GEMZAR [Suspect]
     Active Substance: GEMCITABINE HYDROCHLORIDE
     Indication: BREAST CANCER METASTATIC
     Dosage: 1900 MG PER CYCLE
     Route: 042
     Dates: start: 20190424

REACTIONS (2)
  - Injection site swelling [Unknown]
  - Injection site ulcer [Unknown]

NARRATIVE: CASE EVENT DATE: 20190424
